FAERS Safety Report 23058280 (Version 1)
Quarter: 2023Q4

REPORT INFORMATION
  Report Type: Spontaneous
  Country: US (occurrence: None)
  Receive Date: 20231011
  Receipt Date: 20231011
  Transmission Date: 20240110
  Serious: Yes (Hospitalization)
  Sender: FDA-Public Use
  Company Number: None

PATIENT
  Age: 68 Year
  Sex: Male
  Weight: 88.2 kg

DRUGS (9)
  1. IDECABTAGENE VICLEUCEL [Suspect]
     Active Substance: IDECABTAGENE VICLEUCEL
     Indication: Plasma cell myeloma refractory
     Dosage: OTHER FREQUENCY : ONCE;?
     Route: 041
     Dates: start: 20220718, end: 20220718
  2. ALLOPURINOL [Concomitant]
     Active Substance: ALLOPURINOL
  3. ALOGLIPTIN [Concomitant]
     Active Substance: ALOGLIPTIN
  4. FAMOTIDINE [Concomitant]
     Active Substance: FAMOTIDINE
  5. GABAPENTIN [Concomitant]
     Active Substance: GABAPENTIN
  6. GLIPIZIDE [Concomitant]
     Active Substance: GLIPIZIDE
  7. LEVETIRACETAM [Concomitant]
     Active Substance: LEVETIRACETAM
  8. MAGNESIUM OXIDE [Concomitant]
     Active Substance: MAGNESIUM OXIDE
  9. VALACYCLOVIR [Concomitant]
     Active Substance: VALACYCLOVIR HYDROCHLORIDE

REACTIONS (4)
  - Infusion related reaction [None]
  - Cytokine release syndrome [None]
  - Encephalopathy [None]
  - C-reactive protein increased [None]

NARRATIVE: CASE EVENT DATE: 20220718
